FAERS Safety Report 12305995 (Version 4)
Quarter: 2016Q2

REPORT INFORMATION
  Report Type: Spontaneous
  Country: US (occurrence: US)
  Receive Date: 20160426
  Receipt Date: 20160621
  Transmission Date: 20160815
  Serious: Yes (Hospitalization)
  Sender: FDA-Public Use
  Company Number: US-AEGERION-AEGR002527

PATIENT
  Age: 46 Year
  Sex: Male
  Weight: 53.97 kg

DRUGS (5)
  1. MYALEPT [Suspect]
     Active Substance: METRELEPTIN
     Dosage: 5 MG, QD
     Route: 058
     Dates: start: 201602, end: 201604
  2. NOVOLOG [Concomitant]
     Active Substance: INSULIN ASPART
     Indication: TYPE 1 DIABETES MELLITUS
     Dosage: 22 UNITS WITH MEALS, TAKES 12 UNITS IF HE DOESN^T EAT THE MEAL
  3. NICOTINE GUM [Concomitant]
     Active Substance: NICOTINE
     Indication: SMOKING CESSATION THERAPY
  4. MYALEPT [Suspect]
     Active Substance: METRELEPTIN
     Indication: LIPODYSTROPHY ACQUIRED
     Dosage: 2.5 MG, QD
     Route: 058
     Dates: start: 20160120
  5. LEVEMIR [Concomitant]
     Active Substance: INSULIN DETEMIR
     Indication: TYPE 1 DIABETES MELLITUS
     Dosage: 30 UNK, BID

REACTIONS (30)
  - Hypophosphataemia [Unknown]
  - Hypokalaemia [Unknown]
  - Fatigue [Unknown]
  - Blood sodium decreased [Recovered/Resolved]
  - Nausea [Unknown]
  - Hyperkalaemia [Recovering/Resolving]
  - Acute kidney injury [Recovered/Resolved]
  - Influenza [Recovered/Resolved]
  - Diabetic ketoacidosis [Recovered/Resolved]
  - Staphylococcal infection [Recovered/Resolved]
  - Decreased appetite [Unknown]
  - Metabolic encephalopathy [Recovered/Resolved]
  - Night sweats [Not Recovered/Not Resolved]
  - Hyperglycaemia [Recovered/Resolved]
  - Hypoglycaemia [Recovered/Resolved]
  - Leukocytosis [Recovering/Resolving]
  - Musculoskeletal pain [Not Recovered/Not Resolved]
  - Therapy cessation [Not Recovered/Not Resolved]
  - Metabolic acidosis [Recovered/Resolved]
  - Malaise [Recovered/Resolved]
  - Injection site vesicles [Unknown]
  - Anaemia macrocytic [Unknown]
  - Dysphoria [Unknown]
  - Pneumonia [Recovered/Resolved]
  - Blood glucose decreased [Recovered/Resolved]
  - Sleep disorder [Unknown]
  - Blood glucose abnormal [Unknown]
  - Dizziness [Unknown]
  - Weight decreased [Recovered/Resolved]
  - Drug ineffective [Unknown]

NARRATIVE: CASE EVENT DATE: 2016
